FAERS Safety Report 4747613-5 (Version None)
Quarter: 2005Q3

REPORT INFORMATION
  Report Type: 
  Country: None (occurrence: None)
  Receive Date: 20050818
  Receipt Date: 20050110
  Transmission Date: 20060218
  Serious: No
  Sender: FDA-Public Use
  Company Number: US-BRISTOL-MYERS SQUIBB COMPANY-12820312

PATIENT
  Age: 68 Year
  Sex: Male
  Weight: 65 kg

DRUGS (5)
  1. TEQUIN [Suspect]
     Indication: UPPER RESPIRATORY TRACT INFECTION
     Route: 048
     Dates: start: 20050103
  2. AVAPRO [Concomitant]
  3. VERAPAMIL [Concomitant]
  4. DIABETA [Concomitant]
  5. GLUCOPHAGE [Concomitant]

REACTIONS (3)
  - ABDOMINAL DISTENSION [None]
  - DIZZINESS [None]
  - HYPERGLYCAEMIA [None]
